FAERS Safety Report 20499140 (Version 3)
Quarter: 2022Q2

REPORT INFORMATION
  Report Type: Report from Study
  Country: BE (occurrence: BE)
  Receive Date: 20220222
  Receipt Date: 20220518
  Transmission Date: 20220721
  Serious: Yes (Hospitalization)
  Sender: FDA-Public Use
  Company Number: BE-ABBVIE-22K-013-4286502-00

PATIENT
  Sex: Male
  Weight: 75 kg

DRUGS (13)
  1. CARBIDOPA\LEVODOPA [Suspect]
     Active Substance: CARBIDOPA\LEVODOPA
     Indication: Parkinson^s disease
     Route: 050
     Dates: start: 20151207
  2. CARBIDOPA\LEVODOPA [Suspect]
     Active Substance: CARBIDOPA\LEVODOPA
     Dosage: MD 2.0 ML, CD 2.1 ML/HR DURING 16 HOURS, ED 1.0 ML
     Route: 050
     Dates: start: 20210205, end: 20210701
  3. CARBIDOPA\LEVODOPA [Suspect]
     Active Substance: CARBIDOPA\LEVODOPA
     Dosage: REMAINS AT 16 HOURS
     Route: 050
     Dates: start: 20210701, end: 20220516
  4. CARBIDOPA\LEVODOPA [Suspect]
     Active Substance: CARBIDOPA\LEVODOPA
     Dosage: MD 2.0 ML; CD 2.0 ML/HR DURING 16 HOURS; ED 1.0 ML
     Route: 050
     Dates: start: 20220516
  5. OXYBUTYNIN [Concomitant]
     Active Substance: OXYBUTYNIN
     Indication: Product used for unknown indication
     Dosage: HALF?AT 7.00 AND 19.00 HOUR
  6. ATACAND [Concomitant]
     Active Substance: CANDESARTAN CILEXETIL
     Indication: Product used for unknown indication
     Dosage: AT 12.00 HOUR
  7. AZILECT [Concomitant]
     Active Substance: RASAGILINE MESYLATE
     Indication: Product used for unknown indication
     Dosage: AT 7.00 HOUR
  8. AZILECT [Concomitant]
     Active Substance: RASAGILINE MESYLATE
     Dosage: AT 8.00 HOUR
  9. ASPIRIN [Concomitant]
     Active Substance: ASPIRIN
     Indication: Product used for unknown indication
     Dosage: AT 12.00 HOUR
  10. ESCITALOPRAM [Concomitant]
     Active Substance: ESCITALOPRAM OXALATE
     Indication: Product used for unknown indication
  11. PRAMIPEXOLE [Concomitant]
     Active Substance: PRAMIPEXOLE
     Indication: Product used for unknown indication
     Dosage: AT 7.00 HOUR
  12. STALEVO [Concomitant]
     Active Substance: CARBIDOPA\ENTACAPONE\LEVODOPA
     Indication: Product used for unknown indication
  13. VITAMIN B12 [Concomitant]
     Active Substance: CYANOCOBALAMIN
     Indication: Product used for unknown indication
     Dosage: AT 12.00 HOUR

REACTIONS (3)
  - General physical health deterioration [Not Recovered/Not Resolved]
  - Urinary tract infection [Unknown]
  - Device alarm issue [Unknown]
